FAERS Safety Report 7997551-X (Version None)
Quarter: 2011Q4

REPORT INFORMATION
  Report Type: 
  Country: None (occurrence: None)
  Receive Date: 20111221
  Receipt Date: 20111216
  Transmission Date: 20120403
  Serious: Yes (Other)
  Sender: FDA-Public Use
  Company Number: JP-PFIZER INC-2011307236

PATIENT
  Sex: Female

DRUGS (2)
  1. MEILAX [Concomitant]
     Dosage: UNK
  2. LYRICA [Suspect]
     Indication: PAIN
     Dosage: 25 MG, 2X/DAY
     Route: 048

REACTIONS (1)
  - LOW DENSITY LIPOPROTEIN INCREASED [None]
